FAERS Safety Report 24707074 (Version 1)
Quarter: 2024Q4

REPORT INFORMATION
  Report Type: Spontaneous
  Country: US (occurrence: US)
  Receive Date: 20241206
  Receipt Date: 20241206
  Transmission Date: 20250115
  Serious: Yes (Other)
  Sender: SANOFI AVENTIS
  Company Number: US-SANOFI-02328782

PATIENT
  Age: 79 Year
  Sex: Female

DRUGS (1)
  1. LANTUS SOLOSTAR [Suspect]
     Active Substance: INSULIN GLARGINE
     Dosage: UNK
     Route: 065

REACTIONS (5)
  - Breast cancer stage IV [Unknown]
  - Cerebrovascular accident [Unknown]
  - Thyroid neoplasm [Unknown]
  - Sinusitis [Unknown]
  - Laryngitis [Unknown]

NARRATIVE: CASE EVENT DATE: 20220101
